FAERS Safety Report 10287048 (Version 3)
Quarter: 2014Q3

REPORT INFORMATION
  Report Type: Spontaneous
  Country: TR (occurrence: TR)
  Receive Date: 20140709
  Receipt Date: 20140821
  Transmission Date: 20150326
  Serious: Yes (Other)
  Sender: FDA-Public Use
  Company Number: PHHY2014TR070110

PATIENT
  Age: 39 Year
  Sex: Female
  Weight: 64 kg

DRUGS (1)
  1. GILENYA [Suspect]
     Active Substance: FINGOLIMOD HYDROCHLORIDE
     Indication: RELAPSING-REMITTING MULTIPLE SCLEROSIS
     Route: 048
     Dates: start: 20121203, end: 20130203

REACTIONS (21)
  - Pharyngeal erythema [Unknown]
  - Breath sounds abnormal [Unknown]
  - Blood glucose increased [Unknown]
  - Neutrophil count increased [Unknown]
  - Blood thyroid stimulating hormone decreased [Unknown]
  - Aspartate aminotransferase increased [Recovered/Resolved]
  - Hemiparesis [Unknown]
  - Platelet distribution width increased [Unknown]
  - Infection [Recovered/Resolved]
  - Monocyte count increased [Unknown]
  - Alanine aminotransferase increased [Recovered/Resolved]
  - Herpes virus infection [Recovered/Resolved]
  - Sinus tachycardia [Unknown]
  - Rales [Unknown]
  - Haematocrit decreased [Unknown]
  - Red blood cell count decreased [Unknown]
  - Cardiac disorder [Recovered/Resolved]
  - Haemoglobin decreased [Unknown]
  - Rhinorrhoea [Unknown]
  - Lymphocyte count decreased [Unknown]
  - White blood cell disorder [Unknown]
